FAERS Safety Report 15453320 (Version 4)
Quarter: 2019Q1

REPORT INFORMATION
  Report Type: Spontaneous
  Country: US (occurrence: US)
  Receive Date: 20181001
  Receipt Date: 20190306
  Transmission Date: 20190417
  Serious: No
  Sender: FDA-Public Use
  Company Number: US-PFIZER INC-2018389262

PATIENT
  Age: 60 Year
  Sex: Female
  Weight: 80 kg

DRUGS (3)
  1. METHOTREXATE SODIUM. [Suspect]
     Active Substance: METHOTREXATE SODIUM
     Indication: RHEUMATOID ARTHRITIS
     Dosage: 20 MG, WEEKLY (8 PILLS ONCE A WEEK)
     Route: 048
     Dates: start: 201606, end: 2017
  2. HUMIRA [Suspect]
     Active Substance: ADALIMUMAB
     Dosage: UNK
  3. ENBREL [Suspect]
     Active Substance: ETANERCEPT
     Dosage: UNK

REACTIONS (11)
  - Arthralgia [Unknown]
  - Depressed mood [Unknown]
  - Fibromyalgia [Unknown]
  - Myalgia [Unknown]
  - Drug ineffective [Unknown]
  - Insomnia [Unknown]
  - Fatigue [Unknown]
  - Sleep disorder [Unknown]
  - Joint stiffness [Unknown]
  - Anxiety [Unknown]
  - Stress [Unknown]
